FAERS Safety Report 8609770-X (Version None)
Quarter: 2012Q3

REPORT INFORMATION
  Report Type: 
  Country: None (occurrence: None)
  Receive Date: 20120821
  Receipt Date: 20120815
  Transmission Date: 20120928
  Serious: Yes (Other)
  Sender: FDA-Public Use
  Company Number: CH-PFIZER INC-2012199348

PATIENT
  Age: 58 Year
  Sex: Female
  Weight: 60 kg

DRUGS (6)
  1. SULFASALAZINE [Suspect]
     Dosage: 2 G, 1X/DAY
     Route: 048
     Dates: start: 20110511, end: 20110907
  2. MEFENAMIC ACID [Suspect]
     Dosage: 500 MG, AS NEEDED
     Route: 048
  3. VOLTAFLEX PLUS [Concomitant]
     Dosage: 1 DF, 1X/DAY
     Route: 048
     Dates: start: 20100101
  4. PREDNISOLONE [Suspect]
     Dosage: 20 MG, 1X/DAY
     Route: 048
     Dates: start: 20110507, end: 20110510
  5. CONDROSULF [Concomitant]
     Dosage: 1 DF, 1X/DAY
     Route: 048
     Dates: start: 20100101
  6. METHOTREXATE SODIUM [Suspect]
     Indication: RHEUMATOID ARTHRITIS
     Dosage: 20 MG, AS NEEDED
     Route: 058
     Dates: start: 20110413, end: 20110507

REACTIONS (4)
  - TOOTH DISORDER [None]
  - WEIGHT INCREASED [None]
  - RESPIRATORY DISORDER [None]
  - ALOPECIA [None]
